FAERS Safety Report 9514687 (Version 1)
Quarter: 2013Q1

REPORT INFORMATION
  Report Type: Spontaneous
  Country: US (occurrence: None)
  Receive Date: 20130305
  Receipt Date: 20130305
  Transmission Date: 20140127
  Serious: Yes (Other)
  Sender: FDA-Public Use
  Company Number: 163-21880-12123106

PATIENT
  Age: 51 Year
  Sex: Female
  Weight: 63.5 kg

DRUGS (7)
  1. REVLIMID [Suspect]
     Indication: MYELODYSPLASTIC SYNDROME
     Dosage: 10 MG,  1 IN 1 D,  PO
     Route: 048
     Dates: start: 20120302
  2. ALBUTEROL (SALBUTAMOL) [Concomitant]
  3. ASPIRIN EC (ACETYLSALICYLIC ACID) [Concomitant]
  4. ESSENTIAL MEGA (MEBUTAMATE) [Concomitant]
  5. NEUPOGEN (FILGRASTIM) [Concomitant]
  6. PROCRIT [Concomitant]
  7. TYLENOL (PARACETAMOL) [Concomitant]

REACTIONS (1)
  - Full blood count decreased [None]
